FAERS Safety Report 4459346-3 (Version None)
Quarter: 2004Q3

REPORT INFORMATION
  Report Type: 
  Country: None (occurrence: None)
  Receive Date: 20040927
  Receipt Date: 20040921
  Transmission Date: 20050211
  Serious: Yes (Other)
  Sender: FDA-Public Use
  Company Number: PHBS2004IE12713

PATIENT
  Sex: Female

DRUGS (3)
  1. PARLODEL [Suspect]
     Dosage: 5 MG, UNK
     Dates: start: 20040701
  2. SANDOMIGRAN [Suspect]
     Dosage: 1.5 MG, UNK
  3. PHENOTHIAZINE [Concomitant]

REACTIONS (3)
  - DRUG INTERACTION [None]
  - FEELING ABNORMAL [None]
  - HALLUCINATION [None]
